FAERS Safety Report 5671248-3 (Version None)
Quarter: 2008Q1

REPORT INFORMATION
  Report Type: 
  Country: None (occurrence: None)
  Receive Date: 20080318
  Receipt Date: 20080106
  Transmission Date: 20080703
  Serious: Yes (Hospitalization, Other)
  Sender: FDA-Public Use
  Company Number: DE-PFIZER INC-2008001948

PATIENT
  Sex: Female
  Weight: 55 kg

DRUGS (1)
  1. MINPROSTIN [Suspect]
     Indication: LABOUR INDUCTION
     Dosage: FREQ:SINGLE DOSE
     Route: 067

REACTIONS (1)
  - POSTPARTUM DEPRESSION [None]
